FAERS Safety Report 22367613 (Version 10)
Quarter: 2025Q2

REPORT INFORMATION
  Report Type: Report from Study
  Country: US (occurrence: US)
  Receive Date: 20230525
  Receipt Date: 20250604
  Transmission Date: 20250717
  Serious: Yes (Hospitalization, Other)
  Sender: TAKEDA
  Company Number: US-TAKEDA-2023TUS051344

PATIENT
  Sex: Male
  Weight: 91 kg

DRUGS (37)
  1. HUMAN IMMUNOGLOBULIN G [Suspect]
     Active Substance: HUMAN IMMUNOGLOBULIN G
     Indication: Immunodeficiency common variable
  2. HUMAN IMMUNOGLOBULIN G [Suspect]
     Active Substance: HUMAN IMMUNOGLOBULIN G
     Dosage: 10 GRAM, 1/WEEK
     Dates: start: 20230118
  3. HUMAN IMMUNOGLOBULIN G [Suspect]
     Active Substance: HUMAN IMMUNOGLOBULIN G
     Dosage: 8 GRAM, 1/WEEK
  4. TIROSINT [Concomitant]
     Active Substance: LEVOTHYROXINE SODIUM
  5. METHOCARBAMOL [Concomitant]
     Active Substance: METHOCARBAMOL
  6. Omega [Concomitant]
  7. CANDESARTAN CILEXETIL [Concomitant]
     Active Substance: CANDESARTAN CILEXETIL
  8. TESTOSTERONE CYPIONATE [Concomitant]
     Active Substance: TESTOSTERONE CYPIONATE
  9. ATENOLOL [Concomitant]
     Active Substance: ATENOLOL
  10. PRASTERONE [Concomitant]
     Active Substance: PRASTERONE
  11. BUPROPION HYDROCHLORIDE [Concomitant]
     Active Substance: BUPROPION HYDROCHLORIDE
  12. DOXYCYCLINE HYCLATE [Concomitant]
     Active Substance: DOXYCYCLINE HYCLATE
  13. Coq [Concomitant]
  14. HERBALS\TURMERIC [Concomitant]
     Active Substance: HERBALS\TURMERIC
  15. PRAZOSIN HYDROCHLORIDE [Concomitant]
     Active Substance: PRAZOSIN HYDROCHLORIDE
  16. FORTEO [Concomitant]
     Active Substance: TERIPARATIDE
  17. VIIBRYD [Concomitant]
     Active Substance: VILAZODONE HYDROCHLORIDE
  18. CLONAZEPAM [Concomitant]
     Active Substance: CLONAZEPAM
  19. SUBOXONE [Concomitant]
     Active Substance: BUPRENORPHINE HYDROCHLORIDE\NALOXONE HYDROCHLORIDE
  20. LIOTHYRONINE SODIUM [Concomitant]
     Active Substance: LIOTHYRONINE SODIUM
  21. VITAMIN D3 [Concomitant]
     Active Substance: CHOLECALCIFEROL
  22. LAMOTRIGINE [Concomitant]
     Active Substance: LAMOTRIGINE
  23. SYMBICORT [Concomitant]
     Active Substance: BUDESONIDE\FORMOTEROL FUMARATE DIHYDRATE
  24. Citracal + D3 [Concomitant]
  25. ACETAMINOPHEN [Concomitant]
     Active Substance: ACETAMINOPHEN
  26. DIPHENHYDRAMINE [Concomitant]
     Active Substance: DIPHENHYDRAMINE
  27. EPINEPHRINE [Concomitant]
     Active Substance: EPINEPHRINE
  28. Lmx [Concomitant]
  29. ALBUTEROL [Concomitant]
     Active Substance: ALBUTEROL
  30. CANDESARTAN [Concomitant]
     Active Substance: CANDESARTAN
  31. ALBUTEROL SULFATE [Concomitant]
     Active Substance: ALBUTEROL SULFATE
  32. TESTOSTERONE [Concomitant]
     Active Substance: TESTOSTERONE
  33. BUPROPION [Concomitant]
     Active Substance: BUPROPION
  34. PRAZOSIN [Concomitant]
     Active Substance: PRAZOSIN
  35. FISH OIL [Concomitant]
     Active Substance: FISH OIL
  36. LIOTHYRONINE [Concomitant]
     Active Substance: LIOTHYRONINE
  37. ALBUTEROL SULFATE [Concomitant]
     Active Substance: ALBUTEROL SULFATE

REACTIONS (11)
  - Epididymitis [Recovering/Resolving]
  - Scrotal infection [Recovered/Resolved]
  - Renal disorder [Unknown]
  - Blood pressure fluctuation [Unknown]
  - Post procedural swelling [Unknown]
  - Blood pressure decreased [Unknown]
  - Localised infection [Unknown]
  - Weight fluctuation [Unknown]
  - Thyroid disorder [Unknown]
  - Weight decreased [Unknown]
  - Urticaria [Unknown]
